FAERS Safety Report 5411235-3 (Version None)
Quarter: 2007Q3

REPORT INFORMATION
  Report Type: 
  Country: None (occurrence: None)
  Receive Date: 20070810
  Receipt Date: 20070808
  Transmission Date: 20080115
  Serious: Yes (Hospitalization)
  Sender: FDA-Public Use
  Company Number: B0482650A

PATIENT
  Age: 17 Year
  Sex: Female

DRUGS (20)
  1. FORTUM [Suspect]
     Dosage: 1000MG THREE TIMES PER DAY
     Route: 042
     Dates: start: 20070529, end: 20070603
  2. NAVELBINE [Suspect]
     Indication: HODGKIN'S DISEASE
     Dosage: 26MG PER DAY
     Route: 042
     Dates: start: 20070522, end: 20070527
  3. HOLOXAN [Suspect]
     Indication: HODGKIN'S DISEASE
     Dosage: 2600MG PER DAY
     Route: 042
     Dates: start: 20070522, end: 20070527
  4. ETOPOSIDE [Suspect]
     Dosage: 280MG PER DAY
     Route: 065
     Dates: start: 20070522, end: 20070527
  5. AMIKLIN [Suspect]
     Dosage: 990MG PER DAY
     Route: 042
     Dates: start: 20070529, end: 20070612
  6. BACTRIM [Suspect]
     Route: 042
     Dates: start: 20070529, end: 20070601
  7. VANCOMYCIN HCL [Suspect]
     Dosage: 495MG FOUR TIMES PER DAY
     Route: 042
     Dates: start: 20070529, end: 20070612
  8. MITOGUAZONE [Concomitant]
     Route: 042
     Dates: start: 20070522, end: 20070527
  9. GRANOCYTE [Concomitant]
     Route: 042
     Dates: start: 20070529
  10. LOVENOX [Concomitant]
     Route: 042
     Dates: start: 20070529
  11. RANIPLEX [Concomitant]
     Route: 042
     Dates: start: 20070529
  12. CLONAZEPAM [Concomitant]
     Route: 048
     Dates: start: 20070529
  13. ATARAX [Concomitant]
     Route: 048
     Dates: start: 20070529
  14. MORPHINE [Concomitant]
     Route: 042
     Dates: start: 20070529
  15. PERFALGAN [Concomitant]
     Route: 042
     Dates: start: 20070529
  16. FUNGIZONE [Concomitant]
     Route: 042
     Dates: start: 20070529
  17. SYMBICORT [Concomitant]
     Dosage: 2PUFF TWICE PER DAY
     Route: 055
  18. BRICANYL [Concomitant]
     Route: 065
  19. DESLORATADINE [Concomitant]
     Dosage: 1UNIT AT NIGHT
     Route: 065
  20. SINGULAIR [Concomitant]
     Dosage: 1UNIT AT NIGHT
     Route: 065

REACTIONS (10)
  - BLISTER [None]
  - DERMATITIS BULLOUS [None]
  - ERYTHEMA [None]
  - OEDEMA [None]
  - PURPURA [None]
  - RASH MACULAR [None]
  - RASH MACULO-PAPULAR [None]
  - SKIN STRIAE [None]
  - TOXIC EPIDERMAL NECROLYSIS [None]
  - WEIGHT INCREASED [None]
